FAERS Safety Report 19541819 (Version 1)
Quarter: 2021Q3

REPORT INFORMATION
  Report Type: Spontaneous
  Country: US (occurrence: US)
  Receive Date: 20210713
  Receipt Date: 20210713
  Transmission Date: 20211014
  Serious: Yes (Other)
  Sender: FDA-Public Use
  Company Number: US-ENDO PHARMACEUTICALS INC-2021-002530

PATIENT
  Age: 51 Year
  Sex: Male

DRUGS (2)
  1. RANITIDINE. [Suspect]
     Active Substance: RANITIDINE
     Indication: ABDOMINAL DISCOMFORT
     Dosage: 150 MG, DAILY
     Route: 065
     Dates: start: 198501, end: 200801
  2. RANITIDINE HYDROCHLORIDE. [Suspect]
     Active Substance: RANITIDINE HYDROCHLORIDE
     Indication: ABDOMINAL DISCOMFORT
     Dosage: 150 MG, DAILY
     Route: 065
     Dates: start: 198501, end: 200801

REACTIONS (3)
  - Prostate cancer [Recovering/Resolving]
  - Type 2 diabetes mellitus [Unknown]
  - Leukaemia [Unknown]

NARRATIVE: CASE EVENT DATE: 20100101
